FAERS Safety Report 8375494-X (Version None)
Quarter: 2012Q1

REPORT INFORMATION
  Report Type: 
  Country: None (occurrence: None)
  Receive Date: 20120323
  Receipt Date: 20110817
  Transmission Date: 20120608
  Serious: Yes (Other)
  Sender: FDA-Public Use
  Company Number: 163-21880-11022902

PATIENT
  Age: 63 Year
  Sex: Female
  Weight: 104.5 kg

DRUGS (22)
  1. MELPHALAN (MELPHALAN) (TABLETS) [Concomitant]
  2. LORAZEPAM [Concomitant]
  3. VELCADE [Concomitant]
  4. ASPIRIN [Concomitant]
  5. COD LIVER OIL (COD-LIVER OIL) UNKNOWN [Concomitant]
  6. GABAPENTIN [Concomitant]
  7. VICODIN [Concomitant]
  8. TESTOSTERONE (TESTOSTERONE (CREAM) [Concomitant]
  9. PREDNISONE [Concomitant]
  10. ALBUTEROL SULFATE HFA (SALBUTAMOL SULFATE) (UNKNOWN) [Concomitant]
  11. AEROSOL INHALER (AEROSOL SPITZNER) (UNKNOWN) [Concomitant]
  12. BISPHOSPHONATE (BISPHOSPHONATES) (UNKNOWN) [Concomitant]
  13. REVLIMID [Suspect]
     Indication: MULTIPLE MYELOMA
     Dosage: 25 MG, X28, PO    10 MG, PO
     Route: 048
     Dates: start: 20100401
  14. REVLIMID [Suspect]
     Indication: MULTIPLE MYELOMA
     Dosage: 25 MG, X28, PO    10 MG, PO
     Route: 048
     Dates: start: 20100701
  15. SOLU-MEDROL [Concomitant]
  16. PROZAC [Concomitant]
  17. TRAZODONE HCL [Concomitant]
  18. FLEXERIL [Concomitant]
  19. BIAXIN (CLAEITHROMYCIN) [Concomitant]
  20. PRILOSEC (OMEPRAZOLE) (CAPSULES) [Concomitant]
  21. VAGIFEM (ESTRADIOL) (TABLETS) [Concomitant]
  22. DEXAMETHASONE [Concomitant]

REACTIONS (5)
  - SWELLING [None]
  - FEELING HOT [None]
  - DEEP VEIN THROMBOSIS [None]
  - DISCOMFORT [None]
  - INJURY [None]
